FAERS Safety Report 4479865-3 (Version None)
Quarter: 2004Q4

REPORT INFORMATION
  Report Type: 
  Country: None (occurrence: None)
  Receive Date: 20041018
  Receipt Date: 20041006
  Transmission Date: 20050328
  Serious: Yes (Hospitalization, Congenital Anomaly)
  Sender: FDA-Public Use
  Company Number: 2004-10-0292

PATIENT
  Age: 1 Day
  Sex: Female

DRUGS (3)
  1. CELESTONE [Suspect]
     Dosage: 12.5MG 2X/WK INTRAMUSCUL
     Route: 030
  2. RITODRINE HYDROCHLORIDE [Concomitant]
  3. MAGNESIUM [Concomitant]

REACTIONS (8)
  - CAESAREAN SECTION [None]
  - CARDIOMEGALY [None]
  - CONGENITAL ATRIAL SEPTAL DEFECT [None]
  - DRUG EXPOSURE DURING PREGNANCY [None]
  - HYPERTROPHIC CARDIOMYOPATHY [None]
  - NEONATAL DISORDER [None]
  - PREMATURE BABY [None]
  - VENTRICULAR HYPERTROPHY [None]
